FAERS Safety Report 9231772 (Version 1)
Quarter: 2013Q2

REPORT INFORMATION
  Report Type: Report from Study
  Country: US (occurrence: US)
  Receive Date: 20130415
  Receipt Date: 20130415
  Transmission Date: 20140414
  Serious: Yes (Other)
  Sender: FDA-Public Use
  Company Number: US-BAXTER-2013BAX013451

PATIENT
  Sex: 0

DRUGS (9)
  1. IFOSFAMIDE FOR INJECTION [Suspect]
     Indication: TRANSITIONAL CELL CARCINOMA
     Dosage: DAYS 1-4
  2. IFOSFAMIDE FOR INJECTION [Suspect]
     Dosage: ON DAY 1
  3. MESNA FOR INJECTION [Suspect]
     Indication: TRANSITIONAL CELL CARCINOMA
     Dosage: ON DAYS 1-4
  4. DOXORUBICIN [Suspect]
     Indication: TRANSITIONAL CELL CARCINOMA
     Dosage: ON DAY 3
  5. GEMCITABINE [Suspect]
     Indication: TRANSITIONAL CELL CARCINOMA
     Dosage: ON DAYS 2 AND 4
  6. GEMCITABINE [Suspect]
     Dosage: ON DAY 1
  7. CISPLATIN [Suspect]
     Indication: TRANSITIONAL CELL CARCINOMA
     Dosage: ON DAY 1
  8. NORMAL SALINE [Concomitant]
     Indication: TRANSITIONAL CELL CARCINOMA
  9. MANNITOL [Concomitant]
     Indication: TRANSITIONAL CELL CARCINOMA
     Dosage: DAY 1

REACTIONS (1)
  - Myocardial infarction [Unknown]
